FAERS Safety Report 8364418-7 (Version None)
Quarter: 2012Q2

REPORT INFORMATION
  Report Type: 
  Country: None (occurrence: None)
  Receive Date: 20120516
  Receipt Date: 20120511
  Transmission Date: 20120825
  Serious: Yes (Hospitalization)
  Sender: FDA-Public Use
  Company Number: US-BRISTOL-MYERS SQUIBB COMPANY-15694524

PATIENT
  Age: 68 Year
  Sex: Female
  Weight: 74 kg

DRUGS (12)
  1. HYDROCODONE BITARTRATE + ACETAMINOPHEN [Concomitant]
     Dates: start: 20090707
  2. BENZONATATE [Concomitant]
     Dates: start: 20090814
  3. PACLITAXEL [Suspect]
     Indication: NON-SMALL CELL LUNG CANCER
     Dosage: NO OF INF:3 LAST DOSE 290MG ON 07APR2011
     Route: 042
     Dates: start: 20110203
  4. SALMETEROL + FLUTICASONE [Concomitant]
     Dates: start: 20100913
  5. TRAVOPROST [Concomitant]
     Dosage: EYE DROPS
     Dates: start: 20090630
  6. GABAPENTIN [Concomitant]
     Dates: start: 20100819
  7. ESOMEPRAZOLE MAGNESIUM [Concomitant]
     Dates: start: 20070101
  8. SUCRALFATE [Concomitant]
     Dates: start: 20090101
  9. CARBOPLATIN [Suspect]
     Indication: NON-SMALL CELL LUNG CANCER
     Dosage: NO OF INF:4 LAST DOSE 460MG ON 07APR2011
     Route: 065
     Dates: start: 20110203
  10. NAPROXEN [Concomitant]
     Dates: start: 20100819
  11. HYDROCHLOROTHIAZIDE [Concomitant]
     Dates: start: 19650101
  12. ROSUVASTATIN [Concomitant]
     Dates: start: 19900101

REACTIONS (1)
  - HYPOVOLAEMIA [None]
